FAERS Safety Report 24024467 (Version 6)
Quarter: 2024Q3

REPORT INFORMATION
  Report Type: Report from Study
  Country: IT (occurrence: IT)
  Receive Date: 20240628
  Receipt Date: 20240710
  Transmission Date: 20241016
  Serious: No
  Sender: ROCHE
  Company Number: IT-ROCHE-3363966

PATIENT
  Age: 67 Year
  Sex: Female
  Weight: 65.5 kg

DRUGS (3)
  1. ALECTINIB [Suspect]
     Active Substance: ALECTINIB
     Indication: Lung cancer metastatic
     Route: 048
     Dates: start: 20220526
  2. ALECTINIB [Suspect]
     Active Substance: ALECTINIB
     Dosage: FREQUENCY TEXT:OTHER
     Route: 048
     Dates: start: 20190603
  3. CEFDITOREN PIVOXIL [Concomitant]
     Active Substance: CEFDITOREN PIVOXIL
     Indication: Pneumonia
     Route: 048
     Dates: start: 20230421, end: 20230506

REACTIONS (2)
  - Pneumonia bacterial [Recovered/Resolved]
  - Pyrexia [Recovered/Resolved]

NARRATIVE: CASE EVENT DATE: 20230418
